FAERS Safety Report 20532949 (Version 2)
Quarter: 2022Q2

REPORT INFORMATION
  Report Type: Spontaneous
  Country: US (occurrence: US)
  Receive Date: 20220301
  Receipt Date: 20220520
  Transmission Date: 20220721
  Serious: No
  Sender: FDA-Public Use
  Company Number: US-PFIZER INC-202200205536

PATIENT
  Age: 57 Year
  Sex: Female

DRUGS (3)
  1. VFEND [Suspect]
     Active Substance: VORICONAZOLE
     Dosage: 200 MG, 1X/DAY
     Route: 048
  2. VFEND [Suspect]
     Active Substance: VORICONAZOLE
     Dosage: 300 MG, DAILY (100 MG PO IN THE MORNING AND 200 MG PO IN THE EVENING)
     Route: 048
  3. VFEND [Suspect]
     Active Substance: VORICONAZOLE
     Dosage: 300 MG, DAILY (TAKE 2 (50 MG) TABLETS QAM AND TAKE 1 (200 MG) TABLET QPM)

REACTIONS (3)
  - Abdominal pain upper [Unknown]
  - Haemoptysis [Unknown]
  - Off label use [Unknown]
